FAERS Safety Report 5849912-2 (Version None)
Quarter: 2008Q3

REPORT INFORMATION
  Report Type: 
  Country: None (occurrence: None)
  Receive Date: 20080819
  Receipt Date: 20080810
  Transmission Date: 20090109
  Serious: Yes (Other)
  Sender: FDA-Public Use
  Company Number: JP-AMGEN-US300137

PATIENT
  Age: 12 Year
  Sex: Female

DRUGS (4)
  1. ENBREL [Suspect]
     Indication: JUVENILE ARTHRITIS
     Route: 065
  2. PREDNISOLONE [Concomitant]
     Indication: JUVENILE ARTHRITIS
     Dosage: DECREASED GRADUALLY FROM 7 MG
     Route: 065
  3. PREDNISOLONE [Concomitant]
     Dosage: 2 MG
  4. METHOTREXATE SODIUM [Concomitant]
     Indication: JUVENILE ARTHRITIS
     Dosage: UNKNOWN
     Route: 065

REACTIONS (3)
  - CONDITION AGGRAVATED [None]
  - RETINAL NEOVASCULARISATION [None]
  - UVEITIS [None]
